FAERS Safety Report 13877851 (Version 1)
Quarter: 2017Q3

REPORT INFORMATION
  Report Type: Spontaneous
  Country: US (occurrence: US)
  Receive Date: 20170817
  Receipt Date: 20170817
  Transmission Date: 20171127
  Serious: No
  Sender: FDA-Public Use
  Company Number: US-BAYER-2017-157267

PATIENT
  Age: 35 Year
  Sex: Female

DRUGS (1)
  1. SKYLA [Suspect]
     Active Substance: LEVONORGESTREL
     Indication: CONTRACEPTION
     Dosage: 14 MCG/24HR, CONT
     Route: 015
     Dates: start: 20170218, end: 20170804

REACTIONS (2)
  - Therapeutic product ineffective [None]
  - Vaginal haemorrhage [None]

NARRATIVE: CASE EVENT DATE: 20170804
